FAERS Safety Report 7296383-8 (Version None)
Quarter: 2011Q1

REPORT INFORMATION
  Report Type: 
  Country: None (occurrence: None)
  Receive Date: 20110211
  Receipt Date: 20110211
  Transmission Date: 20110831
  Serious: Yes (Other)
  Sender: FDA-Public Use
  Company Number: None

PATIENT
  Sex: Male
  Weight: 65.7716 kg

DRUGS (2)
  1. CELEXA [Suspect]
     Indication: ANXIETY
     Dosage: 20MG 1 PER DAY
     Dates: start: 20110118, end: 20110126
  2. CELEXA [Suspect]
     Indication: DEPRESSION
     Dosage: 20MG 1 PER DAY
     Dates: start: 20110118, end: 20110126

REACTIONS (5)
  - SUICIDAL IDEATION [None]
  - TREMOR [None]
  - HALLUCINATION [None]
  - AMNESIA [None]
  - RASH [None]
